FAERS Safety Report 16744598 (Version 1)
Quarter: 2019Q3

REPORT INFORMATION
  Report Type: Spontaneous
  Country: US (occurrence: US)
  Receive Date: 20190826
  Receipt Date: 20190826
  Transmission Date: 20191005
  Serious: Yes (Disabling)
  Sender: FDA-Public Use
  Company Number: None

PATIENT
  Age: 55 Year
  Sex: Male
  Weight: 72 kg

DRUGS (2)
  1. NEWULIFE SOMADERM TRANSDERMAL GEL [Suspect]
     Active Substance: HOMEOPATHICS
     Indication: ASTHENIA
     Dosage: ?          QUANTITY:2 PUMPS;?
     Route: 061
     Dates: start: 20190401, end: 20190630
  2. AMLODIPINE [Concomitant]
     Active Substance: AMLODIPINE BESYLATE

REACTIONS (1)
  - Undifferentiated sarcoma [None]

NARRATIVE: CASE EVENT DATE: 20190601
